FAERS Safety Report 17560934 (Version 2)
Quarter: 2020Q2

REPORT INFORMATION
  Report Type: Spontaneous
  Country: US (occurrence: US)
  Receive Date: 20200319
  Receipt Date: 20200424
  Transmission Date: 20200713
  Serious: No
  Sender: FDA-Public Use
  Company Number: US-009507513-2003USA004802

PATIENT
  Age: 35 Year
  Sex: Female
  Weight: 73.92 kg

DRUGS (2)
  1. GANIRELIX ACETATE INJECTION [Suspect]
     Active Substance: GANIRELIX ACETATE
     Indication: PREVENTION OF PREMATURE OVULATION
     Dosage: 250 MCG DAILY SUBCUTANEOUSLY FOR 4 DAYS
     Route: 058
     Dates: start: 20200213, end: 20200216
  2. FOLLISTIM [Concomitant]
     Active Substance: FOLLITROPIN

REACTIONS (2)
  - Drug ineffective [Unknown]
  - Premature ovulation [Recovered/Resolved with Sequelae]

NARRATIVE: CASE EVENT DATE: 20200219
